FAERS Safety Report 9385022 (Version 1)
Quarter: 2013Q3

REPORT INFORMATION
  Report Type: Spontaneous
  Country: JP (occurrence: JP)
  Receive Date: 20130705
  Receipt Date: 20130705
  Transmission Date: 20140515
  Serious: Yes (Other)
  Sender: FDA-Public Use
  Company Number: JP-ASTELLAS-2013JP007218

PATIENT
  Age: 14 Year
  Sex: Male

DRUGS (8)
  1. PROGRAF [Suspect]
     Indication: NEPHROTIC SYNDROME
     Route: 065
  2. PREDNISOLONE [Suspect]
     Indication: NEPHROTIC SYNDROME
     Route: 065
  3. PREDNISOLONE [Suspect]
     Dosage: 35 MG, UNKNOWN/D
     Route: 065
  4. CICLOSPORIN [Suspect]
     Indication: NEPHROTIC SYNDROME
     Route: 065
  5. MIZORIBINE [Suspect]
     Indication: NEPHROTIC SYNDROME
     Route: 048
  6. CELLCEPT                           /01275102/ [Concomitant]
     Indication: NEPHROTIC SYNDROME
     Route: 048
  7. ALKERAN                            /00006401/ [Concomitant]
     Indication: NEPHROTIC SYNDROME
     Route: 065
  8. THALED [Concomitant]
     Indication: NEPHROTIC SYNDROME
     Route: 048

REACTIONS (3)
  - Off label use [Unknown]
  - Cataract [Unknown]
  - Bone density decreased [Unknown]
